APPROVED DRUG PRODUCT: CHG SCRUB
Active Ingredient: CHLORHEXIDINE GLUCONATE
Strength: 4%
Dosage Form/Route: SOLUTION;TOPICAL
Application: N019258 | Product #002
Applicant: ECOLAB INC
Approved: Jul 22, 1986 | RLD: No | RS: No | Type: OTC